FAERS Safety Report 6091794-0 (Version None)
Quarter: 2009Q1

REPORT INFORMATION
  Report Type: 
  Country: None (occurrence: None)
  Receive Date: 20090225
  Receipt Date: 20080627
  Transmission Date: 20090719
  Serious: No
  Sender: FDA-Public Use
  Company Number: A0735164A

PATIENT
  Age: 36 Year
  Sex: Female

DRUGS (6)
  1. VALTREX [Suspect]
     Indication: GENITAL HERPES
     Dosage: 1G PER DAY
     Route: 048
     Dates: start: 20080409
  2. ZOLOFT [Concomitant]
  3. ZYRTEC [Concomitant]
  4. SINGULAIR [Concomitant]
  5. PREVACID [Concomitant]
  6. XOLAIR [Concomitant]

REACTIONS (4)
  - BLISTER [None]
  - DEPRESSION [None]
  - DYSPEPSIA [None]
  - PHOTOSENSITIVITY REACTION [None]
